FAERS Safety Report 4815969-0 (Version None)
Quarter: 2005Q4

REPORT INFORMATION
  Report Type: 
  Country: None (occurrence: None)
  Receive Date: 20051031
  Receipt Date: 20051011
  Transmission Date: 20060501
  Serious: Yes (Hospitalization)
  Sender: FDA-Public Use
  Company Number: NL-ROCHE-420627

PATIENT
  Age: 5 Year
  Sex: Male

DRUGS (6)
  1. RIVOTRIL [Suspect]
     Indication: EPILEPSY
     Route: 048
     Dates: start: 20020331
  2. KEPPRA [Interacting]
     Indication: EPILEPSY
     Dosage: FORM REPORTED AS MIXTURE.
     Route: 048
     Dates: start: 20050724
  3. KEPPRA [Interacting]
     Dosage: FORM REPORTED AS CAPSULES.
     Route: 048
  4. DEPAKENE [Interacting]
     Indication: EPILEPSY
     Route: 048
     Dates: start: 20010831
  5. DIPHANTOINE [Interacting]
     Indication: EPILEPSY
     Dosage: TWO STRENGTHS REPORTED: 46 MG AND 23 MG TABLETS.
     Route: 048
     Dates: start: 20020702
  6. CHLORAL HYDRATE [Concomitant]
     Dosage: ENEMA FORM
     Dates: start: 20040303

REACTIONS (2)
  - DRUG INTERACTION [None]
  - EPILEPSY [None]
